FAERS Safety Report 16007747 (Version 4)
Quarter: 2019Q1

REPORT INFORMATION
  Report Type: Spontaneous
  Country: CZ (occurrence: CZ)
  Receive Date: 20190226
  Receipt Date: 20190322
  Transmission Date: 20190418
  Serious: Yes (Death, Hospitalization, Other)
  Sender: FDA-Public Use
  Company Number: CZ-ELI_LILLY_AND_COMPANY-CZ201902012263

PATIENT
  Sex: Male

DRUGS (6)
  1. PEMETREXED. [Suspect]
     Active Substance: PEMETREXED
     Indication: PLEURAL MESOTHELIOMA MALIGNANT
     Dosage: UNK UNK, UNKNOWN
     Route: 065
     Dates: start: 201703
  2. VINORELBINE [Suspect]
     Active Substance: VINORELBINE\VINORELBINE TARTRATE
     Indication: PLEURAL MESOTHELIOMA MALIGNANT
     Dosage: UNK UNK, UNKNOWN
     Route: 065
     Dates: start: 201703
  3. CARBOPLATIN. [Suspect]
     Active Substance: CARBOPLATIN
     Indication: PLEURAL MESOTHELIOMA MALIGNANT
     Dosage: UNK UNK, UNKNOWN
     Route: 065
     Dates: start: 201703
  4. MIDAZOLAM [Concomitant]
     Active Substance: MIDAZOLAM HYDROCHLORIDE
     Indication: PREMEDICATION
     Dosage: 5 MG, UNKNOWN
     Route: 042
  5. TRIMECAINE [Concomitant]
     Active Substance: TRIMECAINE
     Indication: LOCAL ANAESTHESIA
     Dosage: UNK UNK, UNKNOWN
     Route: 065
  6. GEMCITABINE HYDROCHLORIDE. [Suspect]
     Active Substance: GEMCITABINE HYDROCHLORIDE
     Indication: PLEURAL MESOTHELIOMA MALIGNANT
     Dosage: UNK UNK, UNKNOWN
     Route: 065
     Dates: start: 201703

REACTIONS (8)
  - Chest pain [Fatal]
  - Malignant neoplasm progression [Fatal]
  - Cardiac failure [Fatal]
  - Pleural effusion [Fatal]
  - Product use in unapproved indication [Unknown]
  - Dyspnoea [Fatal]
  - General physical health deterioration [Fatal]
  - Treatment failure [Unknown]

NARRATIVE: CASE EVENT DATE: 2018
